FAERS Safety Report 19021248 (Version 1)
Quarter: 2021Q1

REPORT INFORMATION
  Report Type: Spontaneous
  Country: CZ (occurrence: CZ)
  Receive Date: 20210317
  Receipt Date: 20210317
  Transmission Date: 20210420
  Serious: Yes (Death)
  Sender: FDA-Public Use
  Company Number: CZ-ROCHE-2789006

PATIENT
  Age: 43 Year
  Sex: Male

DRUGS (5)
  1. OXYCODONE [Suspect]
     Active Substance: OXYCODONE
     Indication: PRODUCT USED FOR UNKNOWN INDICATION
     Dosage: APPROXIMATELY 880 NG/ML
     Route: 065
  2. PREGABALIN. [Concomitant]
     Active Substance: PREGABALIN
  3. METOKLOPRAMID [Concomitant]
  4. FENTANYL. [Concomitant]
     Active Substance: FENTANYL
     Dosage: INTOXICATION THREE MONTHS BEFORE DEATH
  5. CLONAZEPAM. [Suspect]
     Active Substance: CLONAZEPAM
     Indication: PRODUCT USED FOR UNKNOWN INDICATION
     Dosage: TOGETHER WITH A METABOLITE OF APPROXIMATELY 710 NG /ML
     Route: 065

REACTIONS (2)
  - Toxicity to various agents [Fatal]
  - Drug abuse [Fatal]
